FAERS Safety Report 16770441 (Version 2)
Quarter: 2019Q3

REPORT INFORMATION
  Report Type: Spontaneous
  Country: DE (occurrence: DE)
  Receive Date: 20190904
  Receipt Date: 20190924
  Transmission Date: 20191005
  Serious: Yes (Life-Threatening, Hospitalization)
  Sender: FDA-Public Use
  Company Number: DE-SAMSUNG BIOEPIS-SB-2019-25602

PATIENT
  Age: 35 Year
  Sex: Female

DRUGS (2)
  1. FLIXABI [Suspect]
     Active Substance: INFLIXIMAB
     Indication: CROHN^S DISEASE
     Route: 042
     Dates: start: 20190506, end: 20190702
  2. REMICADE [Suspect]
     Active Substance: INFLIXIMAB
     Indication: PRODUCT USED FOR UNKNOWN INDICATION
     Dosage: UNKNOWN
     Route: 065

REACTIONS (7)
  - Dyspnoea [Recovered/Resolved]
  - Malaise [Recovered/Resolved]
  - Angina pectoris [Recovered/Resolved]
  - Agitation [Recovered/Resolved]
  - Flushing [Recovered/Resolved]
  - Ill-defined disorder [Recovered/Resolved]
  - Product substitution issue [Unknown]

NARRATIVE: CASE EVENT DATE: 20190520
